FAERS Safety Report 23790444 (Version 1)
Quarter: 2024Q2

REPORT INFORMATION
  Report Type: Spontaneous
  Country: ES (occurrence: ES)
  Receive Date: 20240427
  Receipt Date: 20240427
  Transmission Date: 20240716
  Serious: Yes (Other)
  Sender: FDA-Public Use
  Company Number: None

PATIENT
  Age: 40 Year
  Sex: Female

DRUGS (4)
  1. LEVOFLOXACIN [Suspect]
     Active Substance: LEVOFLOXACIN
     Indication: Respiratory tract infection
     Dosage: TIME INTERVAL: TOTAL: 500 MG /24H;LEVOFLOXACIN 500 MG 7 TABLETS
     Route: 048
     Dates: start: 20240320, end: 20240320
  2. HYDROCHLOROTHIAZIDE\VALSARTAN [Concomitant]
     Active Substance: HYDROCHLOROTHIAZIDE\VALSARTAN
     Indication: Hypertension
     Dosage: 1-0-0; VALSARTAN/HYDROCHLOROTHIAZIDE 160 MG/12.5 MG
     Route: 048
     Dates: start: 20230207
  3. TOVIAZ [Concomitant]
     Active Substance: FESOTERODINE FUMARATE
     Indication: Urinary incontinence
     Dosage: TOVIAZ  28 TABLETS
     Route: 048
     Dates: start: 20220713
  4. CETIRIZINE [Concomitant]
     Active Substance: CETIRIZINE HYDROCHLORIDE
     Indication: Parapsoriasis
     Dosage: CETIRIZINE 20 TABLETS
     Route: 048
     Dates: start: 20190528

REACTIONS (3)
  - Urticaria [Recovered/Resolved]
  - Tachycardia [Recovered/Resolved]
  - Dyspnoea [Recovered/Resolved]

NARRATIVE: CASE EVENT DATE: 20240320
